FAERS Safety Report 8615302-2 (Version None)
Quarter: 2012Q3

REPORT INFORMATION
  Report Type: 
  Country: None (occurrence: None)
  Receive Date: 20120823
  Receipt Date: 20120814
  Transmission Date: 20120928
  Serious: Yes (Disabling, Other)
  Sender: FDA-Public Use
  Company Number: US-009507513-1205USA02818

PATIENT

DRUGS (5)
  1. FOSAMAX [Suspect]
     Indication: PROPHYLAXIS
     Route: 048
     Dates: start: 20010101
  2. ARAVA [Concomitant]
  3. FOSAMAX [Suspect]
     Indication: OSTEOPOROSIS
  4. PREMARIN [Concomitant]
     Indication: OESTROGEN REPLACEMENT THERAPY
     Dosage: UNK
     Dates: start: 19980101
  5. METHOTREXATE [Concomitant]

REACTIONS (36)
  - TEMPOROMANDIBULAR JOINT SYNDROME [None]
  - ALLERGY TO ARTHROPOD STING [None]
  - FALL [None]
  - SYNOVITIS [None]
  - OSTEOPOROSIS [None]
  - OSTEOPENIA [None]
  - DEVICE FAILURE [None]
  - BLOOD CORTISOL INCREASED [None]
  - OESOPHAGEAL SPASM [None]
  - GASTROOESOPHAGEAL REFLUX DISEASE [None]
  - MAJOR DEPRESSION [None]
  - STRESS FRACTURE [None]
  - THYROID DISORDER [None]
  - INAPPROPRIATE SCHEDULE OF DRUG ADMINISTRATION [None]
  - EYE INJURY [None]
  - OSTEOARTHRITIS [None]
  - OSTEOMYELITIS [None]
  - FOOT FRACTURE [None]
  - MEDICAL DEVICE REMOVAL [None]
  - FIBULA FRACTURE [None]
  - HYPERKERATOSIS [None]
  - TENDONITIS [None]
  - PAIN IN EXTREMITY [None]
  - JOINT EFFUSION [None]
  - IMPAIRED HEALING [None]
  - LOW TURNOVER OSTEOPATHY [None]
  - TOOTH FRACTURE [None]
  - OTITIS MEDIA ACUTE [None]
  - SHOULDER OPERATION [None]
  - HYPERCHOLESTEROLAEMIA [None]
  - GRIEF REACTION [None]
  - FEMUR FRACTURE [None]
  - VERTIGO [None]
  - LABILE HYPERTENSION [None]
  - TRISMUS [None]
  - DEVICE RELATED INFECTION [None]
